FAERS Safety Report 9593352 (Version 1)
Quarter: 2013Q3

REPORT INFORMATION
  Report Type: Spontaneous
  Country: US (occurrence: None)
  Receive Date: 20130930
  Receipt Date: 20130930
  Transmission Date: 20140515
  Serious: No
  Sender: FDA-Public Use
  Company Number: 1000045781

PATIENT
  Age: 85 Year
  Sex: Female

DRUGS (3)
  1. LINZESS [Suspect]
     Indication: IRRITABLE BOWEL SYNDROME
     Route: 048
     Dates: start: 20130605, end: 20130605
  2. LOSARTAN (LOSARTAN) (LOSARTAN) [Concomitant]
  3. DILANTIN (PHENYTOIN) (PHENYTOIN) [Concomitant]

REACTIONS (1)
  - Diarrhoea [None]
